FAERS Safety Report 10667086 (Version 2)
Quarter: 2015Q1

REPORT INFORMATION
  Report Type: Spontaneous
  Country: JP (occurrence: JP)
  Receive Date: 20141222
  Receipt Date: 20150107
  Transmission Date: 20150720
  Serious: Yes (Other)
  Sender: FDA-Public Use
  Company Number: JP-UCBSA-2014021870

PATIENT
  Age: 73 Year
  Sex: Female

DRUGS (2)
  1. XYZAL [Suspect]
     Active Substance: LEVOCETIRIZINE DIHYDROCHLORIDE
     Indication: PRURITUS
     Dosage: 5 MG, ONCE DAILY (QD)
     Route: 048
     Dates: end: 201411
  2. XYZAL [Suspect]
     Active Substance: LEVOCETIRIZINE DIHYDROCHLORIDE
     Dosage: 10 MG, ONCE DAILY (QD)
     Route: 048
     Dates: start: 201411

REACTIONS (2)
  - Intraocular pressure increased [Recovered/Resolved]
  - Anticholinergic syndrome [Unknown]

NARRATIVE: CASE EVENT DATE: 2014
